FAERS Safety Report 6634762-X (Version None)
Quarter: 2010Q1

REPORT INFORMATION
  Report Type: 
  Country: None (occurrence: None)
  Receive Date: 20100315
  Receipt Date: 20100309
  Transmission Date: 20100710
  Serious: Yes (Hospitalization)
  Sender: FDA-Public Use
  Company Number: US-MERCK-1003USA01363

PATIENT
  Age: 60 Year
  Sex: Female

DRUGS (8)
  1. FOSAMAX [Suspect]
     Indication: OSTEOPENIA
     Route: 048
  2. FOSAMAX [Suspect]
     Route: 048
  3. FOSAMAX [Suspect]
     Indication: OSTEOPOROSIS
     Route: 048
  4. FOSAMAX [Suspect]
     Route: 048
  5. LIPITOR [Concomitant]
     Route: 065
  6. TOPROL-XL [Concomitant]
     Route: 065
  7. L-THYROXIN [Concomitant]
     Route: 065
  8. ALENDRONATE SODIUM [Suspect]
     Route: 048
     Dates: end: 20090201

REACTIONS (4)
  - CERVICAL VERTEBRAL FRACTURE [None]
  - OSTEOPOROSIS [None]
  - SPINAL COLUMN INJURY [None]
  - SPINAL FRACTURE [None]
